FAERS Safety Report 7433369-4 (Version None)
Quarter: 2011Q2

REPORT INFORMATION
  Report Type: 
  Country: None (occurrence: None)
  Receive Date: 20110422
  Receipt Date: 20110421
  Transmission Date: 20111010
  Serious: Yes (Death)
  Sender: FDA-Public Use
  Company Number: JP-ABBOTT-08P-087-0481487-00

PATIENT
  Age: 91 Year
  Sex: Male
  Weight: 65 kg

DRUGS (3)
  1. CHLORMADINONE ACETATE TAB [Concomitant]
     Indication: PROSTATE CANCER STAGE IV
     Route: 048
     Dates: end: 20070712
  2. VOLTAREN [Concomitant]
     Indication: CANCER PAIN
     Route: 054
     Dates: start: 20070301, end: 20070712
  3. LEUPLIN SR FOR INJECTION 11.25 MG [Suspect]
     Indication: PROSTATE CANCER STAGE IV
     Route: 058
     Dates: start: 20061207, end: 20070614

REACTIONS (2)
  - PROSTATE CANCER [None]
  - CACHEXIA [None]
